FAERS Safety Report 23630502 (Version 1)
Quarter: 2024Q1

REPORT INFORMATION
  Report Type: Spontaneous
  Country: US (occurrence: US)
  Receive Date: 20240314
  Receipt Date: 20240314
  Transmission Date: 20240410
  Serious: No
  Sender: FDA-Public Use
  Company Number: US-ALVOGEN-2023092479

PATIENT
  Sex: Male

DRUGS (1)
  1. BUPRENORPHINE HYDROCHLORIDE\NALOXONE HYDROCHLORIDE [Suspect]
     Active Substance: BUPRENORPHINE HYDROCHLORIDE\NALOXONE HYDROCHLORIDE
     Indication: Drug dependence
     Dosage: EXP: UU-MAR-2025   ?8/2MG IS SPLIT IN 2 HALF AND ONE HALF IN MORNING AND OTHER IN EVENING

REACTIONS (10)
  - Feeling abnormal [Unknown]
  - Malaise [Recovering/Resolving]
  - Dyspnoea [Recovered/Resolved]
  - Somnolence [Unknown]
  - Hyperhidrosis [Unknown]
  - Constipation [Unknown]
  - Therapeutic response shortened [Unknown]
  - Wrong technique in product usage process [Unknown]
  - Product storage error [Unknown]
  - Intentional product use issue [Unknown]
